FAERS Safety Report 21181937 (Version 1)
Quarter: 2022Q3

REPORT INFORMATION
  Report Type: Report from Study
  Country: IT (occurrence: IT)
  Receive Date: 20220807
  Receipt Date: 20220807
  Transmission Date: 20221026
  Serious: Yes (Death)
  Sender: FDA-Public Use
  Company Number: IT-ABBVIE-22K-083-4493628-00

PATIENT
  Age: 63 Year
  Sex: Male

DRUGS (2)
  1. CARBIDOPA\LEVODOPA [Suspect]
     Active Substance: CARBIDOPA\LEVODOPA
     Indication: Parkinson^s disease
     Dosage: DAILY DOSE: 970 MG; PUMP SETTING: MD: 4+3 CR: 2,7 (15H), ED: 2?20 MG/ML 5 MG/ML
     Route: 050
     Dates: start: 20220620, end: 20220801
  2. CARBIDOPA\LEVODOPA [Suspect]
     Active Substance: CARBIDOPA\LEVODOPA

REACTIONS (1)
  - Renal neoplasm [Fatal]
